FAERS Safety Report 8218185-8 (Version None)
Quarter: 2012Q1

REPORT INFORMATION
  Report Type: 
  Country: None (occurrence: None)
  Receive Date: 20120319
  Receipt Date: 20120313
  Transmission Date: 20120608
  Serious: Yes (Disabling)
  Sender: FDA-Public Use
  Company Number: JP-SANOFI-AVENTIS-2012SA003157

PATIENT
  Age: 82 Year
  Sex: Female
  Weight: 50 kg

DRUGS (9)
  1. LANTUS [Suspect]
     Indication: TYPE 2 DIABETES MELLITUS
     Dosage: AT BREAKFAST TIME
     Route: 065
     Dates: start: 20090226, end: 20090509
  2. PLATELET AGGREGATION INHIBITORS [Concomitant]
  3. BIGUANIDES [Concomitant]
     Indication: TYPE 2 DIABETES MELLITUS
     Dates: start: 20070418
  4. ORAL ANTIDIABETICS [Concomitant]
     Indication: TYPE 2 DIABETES MELLITUS
     Dates: start: 20070418
  5. ALPHA GLUCOSIDASE INHIBITORS [Concomitant]
     Indication: TYPE 2 DIABETES MELLITUS
     Dates: start: 20071010
  6. ALL OTHER THERAPEUTIC PRODUCTS [Concomitant]
  7. CALCIUM CHANNEL BLOCKERS [Concomitant]
  8. ANGIOTENSIN II ANTAGONISTS [Concomitant]
  9. ALL OTHER THERAPEUTIC PRODUCTS [Concomitant]

REACTIONS (1)
  - DEMENTIA [None]
